FAERS Safety Report 6173124-9 (Version None)
Quarter: 2009Q2

REPORT INFORMATION
  Report Type: 
  Country: None (occurrence: None)
  Receive Date: 20090430
  Receipt Date: 20090420
  Transmission Date: 20091009
  Serious: Yes (Death, Other)
  Sender: FDA-Public Use
  Company Number: JP-PFIZER INC-2009179300

PATIENT

DRUGS (12)
  1. CAMPTOSAR [Suspect]
     Indication: COLON CANCER
     Dosage: 170MG/BODY (99.4 MG/M2)
     Route: 041
     Dates: start: 20080423, end: 20080507
  2. CAMPTOSAR [Suspect]
     Dosage: 130 MG/BODY, (76 MG/M2)
     Route: 041
     Dates: start: 20080602, end: 20090218
  3. FLUOROURACIL [Suspect]
     Indication: COLON CANCER
     Dosage: 650 MG/BODY (380.1 MG/M2)
     Route: 040
     Dates: start: 20080423, end: 20080507
  4. FLUOROURACIL [Suspect]
     Dosage: (2397.7 MG/M2), 4100 MG/BODY/D1-2
     Route: 041
     Dates: start: 20080423, end: 20080507
  5. FLUOROURACIL [Suspect]
     Dosage: 500 MG/BODY, (292.4 MG/M2)
     Route: 040
     Dates: start: 20080602, end: 20080825
  6. FLUOROURACIL [Suspect]
     Dosage: 3400 MG/BODY/ D1-2, (1988.3 MG/M2)
     Route: 041
     Dates: start: 20080602, end: 20080825
  7. FLUOROURACIL [Suspect]
     Dosage: 340 MG/BODY, (198.8 MG/M2)
     Route: 040
     Dates: start: 20080924, end: 20090218
  8. FLUOROURACIL [Suspect]
     Dosage: 2700 MG/BODY/D1-2, (1578.9 MG/M2)
     Route: 041
     Dates: start: 20080924, end: 20090218
  9. CALCIUM LEVOFOLINATE [Suspect]
     Indication: COLON CANCER
     Dosage: 340 MG/BODY, (198.8 MG/M2)
     Route: 041
     Dates: start: 20080423, end: 20090218
  10. DECADRON [Concomitant]
     Indication: PREMEDICATION
     Dosage: 20 MG, UNK
     Route: 041
     Dates: start: 20080423, end: 20090218
  11. KYTRIL [Concomitant]
     Indication: PREMEDICATION
     Dosage: 3 MG, UNK
     Route: 041
     Dates: start: 20080423, end: 20090218
  12. KYTRIL [Concomitant]
     Indication: NAUSEA
     Dosage: 1 MG OD/BID
     Route: 048
     Dates: start: 20080423, end: 20080701

REACTIONS (6)
  - DIABETES MELLITUS [None]
  - DIARRHOEA [None]
  - DISSEMINATED INTRAVASCULAR COAGULATION [None]
  - INTERSTITIAL LUNG DISEASE [None]
  - LEUKOPENIA [None]
  - RENAL IMPAIRMENT [None]
